FAERS Safety Report 4300086-9 (Version None)
Quarter: 2004Q1

REPORT INFORMATION
  Report Type: 
  Country: None (occurrence: None)
  Receive Date: 20040218
  Receipt Date: 20040204
  Transmission Date: 20041129
  Serious: Yes (Hospitalization)
  Sender: FDA-Public Use
  Company Number: 2004AP00659

PATIENT
  Age: 63 Year
  Sex: Female

DRUGS (8)
  1. IRESSA [Suspect]
     Indication: ADENOCARCINOMA
     Dosage: 250 MG DAILY PO
     Route: 048
     Dates: start: 20031106, end: 20031217
  2. IRESSA [Suspect]
     Indication: NON-SMALL CELL LUNG CANCER
     Dosage: 250 MG DAILY PO
     Route: 048
     Dates: start: 20031106, end: 20031217
  3. CRAVIT [Suspect]
     Indication: CYSTITIS
     Dosage: 300 MG DAILY PO
     Route: 048
     Dates: start: 20031211, end: 20031215
  4. LOXONIN [Suspect]
     Indication: PAIN
     Dosage: 180 MG DAILY PO
     Route: 048
     Dates: start: 20031216, end: 20031216
  5. CEFZON [Suspect]
     Indication: CYSTITIS
     Dosage: 300 MG DAILY PO
     Route: 048
     Dates: start: 20031216, end: 20031217
  6. RINDERON [Concomitant]
  7. ISOBIDE [Concomitant]
  8. GASTER [Concomitant]

REACTIONS (4)
  - ALANINE AMINOTRANSFERASE INCREASED [None]
  - ASPARTATE AMINOTRANSFERASE INCREASED [None]
  - CYSTITIS [None]
  - HEPATIC FUNCTION ABNORMAL [None]
